FAERS Safety Report 6914934-7 (Version None)
Quarter: 2010Q3

REPORT INFORMATION
  Report Type: 
  Country: None (occurrence: None)
  Receive Date: 20100809
  Receipt Date: 20100803
  Transmission Date: 20110219
  Serious: Yes (Death, Other)
  Sender: FDA-Public Use
  Company Number: PHEH2008US02534

PATIENT
  Sex: Male

DRUGS (14)
  1. AREDIA [Suspect]
  2. ZOMETA [Suspect]
  3. ACCUPRIL [Concomitant]
     Dosage: 10 MG DAILY
  4. PROPULSID [Concomitant]
  5. PREVACID [Concomitant]
  6. CARDIZEM CD [Concomitant]
     Dosage: 240 MG DAILY
  7. COZAAR [Concomitant]
  8. DIGITEK [Concomitant]
  9. CARDIKET [Concomitant]
  10. ASPIRIN [Concomitant]
  11. HYDROCHLOROTHIAZIDE [Concomitant]
  12. THALIDOMIDE [Concomitant]
     Indication: MULTIPLE MYELOMA
  13. DEXAMETHASONE [Concomitant]
  14. DIGOXIN [Concomitant]

REACTIONS (71)
  - ANAEMIA [None]
  - ANXIETY [None]
  - AORTIC VALVE CALCIFICATION [None]
  - ARTERIOSCLEROSIS CORONARY ARTERY [None]
  - ATELECTASIS [None]
  - ATRIAL FIBRILLATION [None]
  - BALANCE DISORDER [None]
  - BLOOD CALCIUM DECREASED [None]
  - BLOOD IRON DECREASED [None]
  - BONE DISORDER [None]
  - BUNDLE BRANCH BLOCK RIGHT [None]
  - CARDIAC FAILURE CONGESTIVE [None]
  - CARDIOMEGALY [None]
  - CAROTID INTIMA-MEDIA THICKNESS INCREASED [None]
  - CEREBRAL ATROPHY [None]
  - CEREBRAL ISCHAEMIA [None]
  - CEREBROVASCULAR ACCIDENT [None]
  - CEREBROVASCULAR DISORDER [None]
  - CHEST DISCOMFORT [None]
  - CHEST PAIN [None]
  - CONTUSION [None]
  - CYST [None]
  - DEAFNESS [None]
  - DEFORMITY [None]
  - DEHYDRATION [None]
  - DILATATION ATRIAL [None]
  - DILATATION VENTRICULAR [None]
  - DISORIENTATION [None]
  - DYSPNOEA [None]
  - EMOTIONAL DISTRESS [None]
  - EMPTY SELLA SYNDROME [None]
  - EPISTAXIS [None]
  - FAILURE TO THRIVE [None]
  - FALL [None]
  - GINGIVAL SWELLING [None]
  - HEART RATE INCREASED [None]
  - HYPERTENSION [None]
  - HYPOKINESIA [None]
  - INFECTION [None]
  - INTERNATIONAL NORMALISED RATIO INCREASED [None]
  - LABILE HYPERTENSION [None]
  - LETHARGY [None]
  - LUNG INFILTRATION [None]
  - MENTAL STATUS CHANGES [None]
  - MITRAL VALVE CALCIFICATION [None]
  - MITRAL VALVE INCOMPETENCE [None]
  - MULTIPLE MYELOMA [None]
  - MYOCARDIAL ISCHAEMIA [None]
  - NASAL SEPTUM DEVIATION [None]
  - NON-SMALL CELL LUNG CANCER [None]
  - OBESITY [None]
  - OEDEMA PERIPHERAL [None]
  - OSTEOARTHRITIS [None]
  - OSTEONECROSIS OF JAW [None]
  - OXYGEN SATURATION DECREASED [None]
  - PAIN [None]
  - PALPITATIONS [None]
  - PEPTIC ULCER [None]
  - PERICARDIAL EFFUSION [None]
  - PLEURAL CALCIFICATION [None]
  - PULMONARY HYPERTENSION [None]
  - PULMONARY OEDEMA [None]
  - RENAL FAILURE [None]
  - SINUSITIS [None]
  - SPINAL OSTEOARTHRITIS [None]
  - STAPHYLOCOCCAL INFECTION [None]
  - TACHYCARDIA [None]
  - THROAT LESION [None]
  - TONGUE DISORDER [None]
  - TRICUSPID VALVE INCOMPETENCE [None]
  - TYPE 2 DIABETES MELLITUS [None]
